FAERS Safety Report 17742842 (Version 1)
Quarter: 2020Q2

REPORT INFORMATION
  Report Type: Report from Study
  Country: US (occurrence: US)
  Receive Date: 20200504
  Receipt Date: 20200504
  Transmission Date: 20200714
  Serious: Yes (Death, Hospitalization)
  Sender: FDA-Public Use
  Company Number: US-BAUSCH-BL-2020-013044

PATIENT
  Age: 6 Decade
  Sex: Female
  Weight: 77.18 kg

DRUGS (1)
  1. XIFAXAN [Suspect]
     Active Substance: RIFAXIMIN
     Indication: HEPATIC ENCEPHALOPATHY
     Route: 048

REACTIONS (6)
  - Non-alcoholic steatohepatitis [Fatal]
  - Hepatic cirrhosis [Fatal]
  - Hospice care [Unknown]
  - Weight decreased [Unknown]
  - Hospitalisation [Recovered/Resolved]
  - Hepatic failure [Fatal]

NARRATIVE: CASE EVENT DATE: 2019
